FAERS Safety Report 9124681 (Version 3)
Quarter: 2014Q4

REPORT INFORMATION
  Report Type: Spontaneous
  Country: US (occurrence: US)
  Receive Date: 20130116
  Receipt Date: 20141015
  Transmission Date: 20150529
  Serious: Yes (Other)
  Sender: FDA-Public Use
  Company Number: US-BAYER-2013-005509

PATIENT
  Age: 39 Year
  Sex: Female
  Weight: 61.68 kg

DRUGS (2)
  1. MIRENA [Suspect]
     Active Substance: LEVONORGESTREL
     Indication: MENORRHAGIA
     Dosage: 20 MCG/24HR, CONT
     Route: 015
     Dates: start: 20120626, end: 20130214
  2. DOXYCYCLINE. [Concomitant]
     Active Substance: DOXYCYCLINE
     Indication: CERVICITIS
     Dosage: 1 DF, TID
     Route: 048
     Dates: start: 20130222

REACTIONS (13)
  - Asthenia [Recovered/Resolved]
  - Pain in extremity [Recovered/Resolved]
  - Uterine polyp [None]
  - Device dislocation [Recovered/Resolved]
  - Feeling abnormal [Recovered/Resolved]
  - Post procedural haemorrhage [Recovered/Resolved]
  - Abdominal distension [Recovered/Resolved]
  - Cervicitis [None]
  - Abdominal pain upper [Recovering/Resolving]
  - Weight increased [Recovering/Resolving]
  - Back pain [Recovered/Resolved]
  - Endometritis [None]
  - Constipation [Recovered/Resolved]

NARRATIVE: CASE EVENT DATE: 20120626
